FAERS Safety Report 21651830 (Version 1)
Quarter: 2022Q4

REPORT INFORMATION
  Report Type: Spontaneous
  Country: US (occurrence: US)
  Receive Date: 20221128
  Receipt Date: 20221128
  Transmission Date: 20230113
  Serious: No
  Sender: FDA-Public Use
  Company Number: US-CHIESI-2022CHF01242

PATIENT
  Age: 1 Year
  Sex: Male

DRUGS (3)
  1. REVCOVI [Suspect]
     Active Substance: ELAPEGADEMASE-LVLR
     Indication: Combined immunodeficiency
     Dosage: 1.5ML 1 TIME PER WEEK
     Dates: start: 20210316
  2. REVCOVI [Suspect]
     Active Substance: ELAPEGADEMASE-LVLR
     Dosage: 1.5ML 1 TIME PER WEEK
     Dates: start: 20210316
  3. REVCOVI [Suspect]
     Active Substance: ELAPEGADEMASE-LVLR
     Dosage: 1.2ML 1 TIME PER WEEK
     Dates: start: 20220309

REACTIONS (3)
  - Rhinorrhoea [Not Recovered/Not Resolved]
  - Product preparation issue [Not Recovered/Not Resolved]
  - Incorrect dose administered [Not Recovered/Not Resolved]

NARRATIVE: CASE EVENT DATE: 20220308
